FAERS Safety Report 4803045-2 (Version None)
Quarter: 2005Q4

REPORT INFORMATION
  Report Type: 
  Country: None (occurrence: None)
  Receive Date: 20051019
  Receipt Date: 20051003
  Transmission Date: 20060501
  Serious: Yes (Hospitalization)
  Sender: FDA-Public Use
  Company Number: FR-GLAXOSMITHKLINE-B0396251A

PATIENT
  Age: 56 Year
  Sex: Female

DRUGS (16)
  1. AUGMENTIN '125' [Suspect]
     Dosage: 1G THREE TIMES PER DAY
     Route: 042
     Dates: start: 20050930, end: 20051010
  2. ROCEPHIN [Concomitant]
     Dates: start: 20050927, end: 20050930
  3. OFLOCET [Concomitant]
     Dates: start: 20050927, end: 20050930
  4. PERFALGAN [Concomitant]
     Dates: start: 20050927, end: 20050930
  5. DAFALGAN [Concomitant]
     Route: 048
     Dates: start: 20050930, end: 20051003
  6. ROVAMYCINE [Concomitant]
     Route: 048
     Dates: start: 20050930
  7. CORTANCYL [Concomitant]
     Dosage: 7MG PER DAY
     Route: 048
  8. PLAQUENIL [Concomitant]
     Dosage: 1TAB TWICE PER DAY
     Route: 048
     Dates: start: 20040101
  9. ELISOR [Concomitant]
     Dosage: 40MG PER DAY
     Route: 048
     Dates: end: 20051003
  10. NEO-MERCAZOLE TAB [Concomitant]
     Indication: BASEDOW'S DISEASE
     Dosage: 40MG PER DAY
     Route: 048
     Dates: start: 20040101
  11. AMLOR [Concomitant]
     Indication: HYPERTENSION
     Dosage: 10MG PER DAY
     Route: 048
  12. PROZAC [Concomitant]
     Indication: DEPRESSION
     Dosage: 20MG PER DAY
     Route: 048
  13. SERESTA [Concomitant]
     Route: 048
  14. LEVOTHYROX [Concomitant]
     Dosage: 75MCG PER DAY
     Route: 048
  15. OROCAL D3 [Concomitant]
  16. DAFLON [Concomitant]
     Route: 048

REACTIONS (5)
  - BLOOD ALKALINE PHOSPHATASE INCREASED [None]
  - CHOLESTASIS [None]
  - GAMMA-GLUTAMYLTRANSFERASE INCREASED [None]
  - HEPATOCELLULAR DAMAGE [None]
  - TRANSAMINASES INCREASED [None]
